FAERS Safety Report 8536099-0 (Version None)
Quarter: 2012Q3

REPORT INFORMATION
  Report Type: 
  Country: None (occurrence: None)
  Receive Date: 20120718
  Receipt Date: 20120718
  Transmission Date: 20120928
  Serious: Yes (Hospitalization)
  Sender: FDA-Public Use
  Company Number: None

PATIENT
  Sex: Male
  Weight: 85.27 kg

DRUGS (1)
  1. LOVENOX [Suspect]
     Indication: THROMBOSIS PROPHYLAXIS
     Dosage: 30MG DAILY SUBQ
     Route: 058
     Dates: start: 20120217, end: 20120221

REACTIONS (4)
  - WOUND DRAINAGE [None]
  - SPINAL COLUMN STENOSIS [None]
  - MUSCULAR WEAKNESS [None]
  - SPINAL CORD HAEMORRHAGE [None]
